FAERS Safety Report 9684590 (Version 1)
Quarter: 2013Q4

REPORT INFORMATION
  Report Type: Spontaneous
  Country: DE (occurrence: DE)
  Receive Date: 20131112
  Receipt Date: 20131112
  Transmission Date: 20140711
  Serious: Yes (Other)
  Sender: FDA-Public Use
  Company Number: DE-ASTRAZENECA-2013SE81817

PATIENT
  Age: 19072 Day
  Sex: Female

DRUGS (15)
  1. SEROQUEL PROLONG [Suspect]
     Route: 048
     Dates: start: 201207, end: 20130313
  2. SEROQUEL PROLONG [Interacting]
     Route: 048
     Dates: start: 20130314, end: 20130411
  3. SEROQUEL PROLONG [Interacting]
     Route: 048
     Dates: start: 20130412, end: 20130415
  4. SEROQUEL PROLONG [Interacting]
     Route: 048
     Dates: start: 20130416, end: 20130419
  5. VALPROATE CHRONO [Interacting]
     Dosage: 800-1500 MG, DAILY
     Route: 048
     Dates: start: 2009, end: 20130425
  6. VALPROATE CHRONO [Interacting]
     Route: 048
     Dates: start: 20130426
  7. TAVOR [Suspect]
     Route: 048
     Dates: start: 20130314, end: 20130325
  8. TAVOR [Suspect]
     Route: 048
     Dates: start: 20130326, end: 20130401
  9. TAVOR [Suspect]
     Dosage: 0.5-1 MG, DAILY
     Route: 048
     Dates: start: 20130402, end: 20130429
  10. CITALOPRAM [Concomitant]
     Route: 048
     Dates: start: 201303, end: 20130409
  11. CITALOPRAM [Concomitant]
     Route: 048
     Dates: start: 20130410, end: 20130419
  12. CITALOPRAM [Concomitant]
     Route: 048
     Dates: start: 20130420
  13. LAMOTRIGEN [Concomitant]
     Route: 048
     Dates: start: 201303, end: 20130319
  14. LAMOTRIGEN [Concomitant]
     Route: 048
     Dates: start: 20130320
  15. L-THYROXIN [Concomitant]
     Route: 048

REACTIONS (4)
  - Drug interaction [Unknown]
  - Psychotic disorder [Unknown]
  - Subileus [Recovered/Resolved]
  - Ileus [Recovered/Resolved]
